FAERS Safety Report 24309717 (Version 2)
Quarter: 2024Q4

REPORT INFORMATION
  Report Type: Spontaneous
  Country: US (occurrence: US)
  Receive Date: 20240912
  Receipt Date: 20241013
  Transmission Date: 20250115
  Serious: No
  Sender: GLAXOSMITHKLINE
  Company Number: US-GSK-US2024109389

PATIENT
  Sex: Female

DRUGS (2)
  1. JEMPERLI [Suspect]
     Active Substance: DOSTARLIMAB\DOSTARLIMAB-GXLY
     Indication: Endometrial cancer
     Dosage: 500 MG, IV 3 WEEKS FOR 6 DOSES
  2. JEMPERLI [Suspect]
     Active Substance: DOSTARLIMAB\DOSTARLIMAB-GXLY
     Dosage: 100 MG IV EVERY 6 WEEKS
     Route: 042

REACTIONS (1)
  - Product dose omission issue [Unknown]
